FAERS Safety Report 24006120 (Version 1)
Quarter: 2024Q2

REPORT INFORMATION
  Report Type: Spontaneous
  Country: AU (occurrence: AU)
  Receive Date: 20240624
  Receipt Date: 20240624
  Transmission Date: 20240716
  Serious: Yes (Death, Other)
  Sender: FDA-Public Use
  Company Number: AU-JNJFOC-20240223741

PATIENT
  Age: 74 Year
  Sex: Male

DRUGS (34)
  1. CILTACABTAGENE AUTOLEUCEL [Suspect]
     Active Substance: CILTACABTAGENE AUTOLEUCEL
     Indication: Plasma cell myeloma
     Dosage: 70 ML
     Route: 042
     Dates: start: 20211123, end: 20211123
  2. DARATUMUMAB [Suspect]
     Active Substance: DARATUMUMAB
     Indication: Plasma cell myeloma
     Dosage: 15 ML
     Route: 058
     Dates: start: 20210907, end: 20211027
  3. DEXAMETHASONE [Suspect]
     Active Substance: DEXAMETHASONE
     Indication: Plasma cell myeloma
     Dosage: 20 MG
     Route: 048
     Dates: start: 20210907, end: 20211028
  4. FLUDARABINE PHOSPHATE [Suspect]
     Active Substance: FLUDARABINE PHOSPHATE
     Indication: Plasma cell myeloma
     Dosage: 102.5 ML
     Route: 042
     Dates: start: 20211118, end: 20211120
  5. POMALIDOMIDE [Suspect]
     Active Substance: POMALIDOMIDE
     Indication: Plasma cell myeloma
     Dosage: 4 MG
     Route: 065
     Dates: start: 20210907, end: 20211026
  6. ATORVASTATIN [Concomitant]
     Active Substance: ATORVASTATIN
     Indication: Acute coronary syndrome
     Dosage: 80 MG  INTERVAL: 1 DAY
     Route: 048
     Dates: start: 20230406
  7. COLCHICINE [Concomitant]
     Active Substance: COLCHICINE
     Indication: Pneumonia
     Dosage: 500 MG  INTERVAL: 1 DAY
     Route: 048
     Dates: start: 20230119
  8. CYCLOPHOSPHAMIDE [Concomitant]
     Active Substance: CYCLOPHOSPHAMIDE
     Indication: Plasma cell myeloma
     Dosage: 531.5 ML
     Route: 042
     Dates: start: 20211118, end: 20211120
  9. ERGOCALCIFEROL [Concomitant]
     Active Substance: ERGOCALCIFEROL
     Indication: Prophylaxis
     Dosage: 2000 DOSE  INTERVAL: 1 DAY
     Route: 048
     Dates: start: 20220215
  10. FILGRASTIM [Concomitant]
     Active Substance: FILGRASTIM
     Indication: Myelodysplastic syndrome
     Dosage: 480 MG  INTERVAL: 1 DAY
     Route: 065
     Dates: start: 20240110, end: 20240122
  11. HYDROCORTISONE SODIUM SUCCINATE [Concomitant]
     Active Substance: HYDROCORTISONE SODIUM SUCCINATE
     Dosage: 100 MG INTERVAL: 0 DAY;
     Route: 042
     Dates: start: 20240119, end: 20240120
  12. HYDROCORTISONE SODIUM SUCCINATE [Concomitant]
     Active Substance: HYDROCORTISONE SODIUM SUCCINATE
     Dosage: 100 MG INTERVAL: 0 DAY;
     Route: 042
     Dates: start: 20240121, end: 20240122
  13. HYDROCORTISONE SODIUM SUCCINATE [Concomitant]
     Active Substance: HYDROCORTISONE SODIUM SUCCINATE
     Dosage: 100 MG INTERVAL: 1 DAY;
     Route: 042
     Dates: start: 20240123, end: 20240127
  14. HYDROCORTISONE SODIUM SUCCINATE [Concomitant]
     Active Substance: HYDROCORTISONE SODIUM SUCCINATE
     Dosage: 100 MG INTERVAL: 1 DAY;
     Route: 042
     Dates: start: 20240128, end: 20240206
  15. HYDROCORTISONE SODIUM SUCCINATE [Concomitant]
     Active Substance: HYDROCORTISONE SODIUM SUCCINATE
     Indication: Pericarditis
     Dosage: 200 MG
     Route: 042
     Dates: start: 20240119, end: 20240119
  16. LIDOCAINE [Concomitant]
     Active Substance: LIDOCAINE
     Indication: Anal ulcer
     Dosage: UNK
     Route: 061
     Dates: start: 20231207
  17. MAGNESIUM [Concomitant]
     Active Substance: MAGNESIUM
     Indication: Blood creatine phosphokinase increased
     Dosage: 1000 MG ; INTERVAL: 1 DAY
     Route: 048
     Dates: start: 20220731
  18. MEROPENEM [Concomitant]
     Active Substance: MEROPENEM
     Indication: Pyrexia
     Dosage: 1 G  INTERVAL: 0 DAY
     Route: 042
     Dates: start: 20240119, end: 20240126
  19. MEROPENEM [Concomitant]
     Active Substance: MEROPENEM
     Dosage: 1 G ; INTERVAL: 0 DAY
     Route: 042
     Dates: start: 20240128, end: 20240201
  20. MEROPENEM [Concomitant]
     Active Substance: MEROPENEM
     Dosage: 1 G ; INTERVAL: 0 DAY
     Route: 042
     Dates: start: 20240214, end: 20240216
  21. METOPROLOL TARTRATE [Concomitant]
     Active Substance: METOPROLOL TARTRATE
     Indication: Acute coronary syndrome
     Dosage: 25 ML ; INTERVAL: 1 DAY
     Route: 048
     Dates: start: 20230407
  22. ACETAMINOPHEN [Concomitant]
     Active Substance: ACETAMINOPHEN
     Indication: Anal haemorrhage
     Dosage: 1 G ; INTERVAL: 0 DAY
     Route: 048
     Dates: start: 20231208
  23. ACETAMINOPHEN [Concomitant]
     Active Substance: ACETAMINOPHEN
     Indication: Escherichia bacteraemia
     Dosage: UNK
     Route: 065
  24. ACETAMINOPHEN [Concomitant]
     Active Substance: ACETAMINOPHEN
     Dosage: UNK
     Route: 065
  25. PREDNISOLONE [Concomitant]
     Active Substance: PREDNISOLONE
     Indication: Pericarditis
     Dosage: 30 MG ; INTERVAL: 1 DAY
     Route: 048
     Dates: start: 20231216, end: 20240119
  26. PREDNISOLONE [Concomitant]
     Active Substance: PREDNISOLONE
     Dosage: 35 MG
     Route: 048
     Dates: start: 20230213, end: 20230213
  27. PREGABALIN [Concomitant]
     Active Substance: PREGABALIN
     Indication: Product used for unknown indication
     Route: 065
  28. PREGABALIN [Concomitant]
     Active Substance: PREGABALIN
     Indication: Product used for unknown indication
     Route: 065
  29. SODIUM PHOSPHATE, MONOBASIC, ANHYDROUS [Concomitant]
     Active Substance: SODIUM PHOSPHATE, MONOBASIC, ANHYDROUS
     Indication: Hypophosphataemia
     Dosage: 3 UNK  INTERVAL: 1 DAY
     Route: 048
     Dates: start: 20220412
  30. SULFAMETHOXAZOLE AND TRIMETHOPRIM [Concomitant]
     Active Substance: SULFAMETHOXAZOLE\TRIMETHOPRIM
     Indication: Antibiotic prophylaxis
     Dosage: UNK  INTERVAL: 1 DAY
     Route: 065
     Dates: start: 20211118
  31. TOCILIZUMAB [Concomitant]
     Active Substance: TOCILIZUMAB
     Indication: Pericarditis
     Dosage: 162 MG ; INTERVAL: 1 WEEK
     Route: 042
     Dates: start: 20230911
  32. VANCOMYCIN [Concomitant]
     Active Substance: VANCOMYCIN
     Dosage: 1 G
     Route: 042
     Dates: start: 20240119, end: 20240122
  33. VANCOMYCIN [Concomitant]
     Active Substance: VANCOMYCIN
     Indication: Product used for unknown indication
     Dosage: 2.5 G
     Route: 042
     Dates: start: 20240119, end: 20240119
  34. ZOLEDRONIC ACID [Concomitant]
     Active Substance: ZOLEDRONIC ACID
     Indication: Prophylaxis
     Dosage: 4 MG ; INTERVAL: 3 MONTH
     Route: 042

REACTIONS (2)
  - Acute myeloid leukaemia [Fatal]
  - Haemorrhage intracranial [Not Recovered/Not Resolved]

NARRATIVE: CASE EVENT DATE: 20240122
